FAERS Safety Report 25796277 (Version 2)
Quarter: 2025Q3

REPORT INFORMATION
  Report Type: Report from Study
  Country: AR (occurrence: AR)
  Receive Date: 20250912
  Receipt Date: 20250930
  Transmission Date: 20251021
  Serious: Yes (Other)
  Sender: NOVARTIS
  Company Number: AR-002147023-NVSC2025AR123999

PATIENT
  Sex: Female

DRUGS (3)
  1. SCEMBLIX [Suspect]
     Active Substance: ASCIMINIB HYDROCHLORIDE
     Indication: Chronic myeloid leukaemia
     Dosage: 40 MG, Q12H
     Route: 048
     Dates: start: 20250710
  2. SCEMBLIX [Suspect]
     Active Substance: ASCIMINIB HYDROCHLORIDE
     Dosage: 80 MG, QD
     Route: 048
  3. SCEMBLIX [Suspect]
     Active Substance: ASCIMINIB HYDROCHLORIDE
     Dosage: 40 MG, QD
     Route: 048
     Dates: start: 20250724

REACTIONS (12)
  - Gastrointestinal haemorrhage [Unknown]
  - Visual impairment [Recovering/Resolving]
  - Decreased appetite [Recovering/Resolving]
  - Oral discomfort [Recovered/Resolved]
  - Tremor [Recovering/Resolving]
  - Drug intolerance [Unknown]
  - Headache [Unknown]
  - Palatal swelling [Unknown]
  - Burning sensation [Unknown]
  - Head discomfort [Unknown]
  - Laziness [Unknown]
  - Inappropriate schedule of product administration [Unknown]
